FAERS Safety Report 5245330-9 (Version None)
Quarter: 2007Q1

REPORT INFORMATION
  Report Type: 
  Country: None (occurrence: None)
  Receive Date: 20070223
  Receipt Date: 20070220
  Transmission Date: 20070707
  Serious: Yes (Hospitalization)
  Sender: FDA-Public Use
  Company Number: DE-GLAXOSMITHKLINE-D0052362A

PATIENT
  Age: 46 Year
  Sex: Female
  Weight: 85 kg

DRUGS (5)
  1. AUGMENTIN '125' [Suspect]
     Indication: FEBRILE INFECTION
     Dosage: 2.2G PER DAY
     Route: 042
     Dates: start: 20070127, end: 20070204
  2. DOCETAXEL [Concomitant]
     Indication: BREAST CANCER
     Dosage: 75MG PER DAY
     Route: 042
     Dates: start: 20061214, end: 20070104
  3. GEMCITABINE [Concomitant]
     Indication: BREAST CANCER
     Dosage: 1000MG PER DAY
     Route: 042
     Dates: start: 20061214, end: 20070115
  4. GRANOCYTE [Concomitant]
     Dosage: 150MCG PER DAY
     Route: 058
     Dates: start: 20070130, end: 20070203
  5. KEPPRA [Concomitant]
     Dosage: 500MG PER DAY
     Route: 048
     Dates: start: 20070201

REACTIONS (1)
  - EPILEPSY [None]
